FAERS Safety Report 7432235-8 (Version None)
Quarter: 2011Q2

REPORT INFORMATION
  Report Type: 
  Country: None (occurrence: None)
  Receive Date: 20110422
  Receipt Date: 20110407
  Transmission Date: 20111010
  Serious: No
  Sender: FDA-Public Use
  Company Number: US-B.I. PHARMACEUTICALS,INC./RIDGEFIELD-2011-BP-07929BP

PATIENT
  Age: 78 Year
  Sex: Female

DRUGS (5)
  1. TICASON [Concomitant]
     Indication: CORONARY ARTERY DISEASE
  2. TICASON [Concomitant]
     Indication: AORTIC VALVE REPLACEMENT
  3. PRADAXA [Suspect]
     Indication: ATRIAL FIBRILLATION
     Dosage: 300 MG
     Route: 048
     Dates: start: 20110225
  4. TICASON [Concomitant]
     Indication: MITRAL VALVE REPAIR
  5. PRADAXA [Suspect]
     Dosage: 150 MG
     Route: 048
     Dates: start: 20110308

REACTIONS (2)
  - OESOPHAGEAL PAIN [None]
  - HEADACHE [None]
